FAERS Safety Report 20960880 (Version 1)
Quarter: 2022Q2

REPORT INFORMATION
  Report Type: Report from Study
  Country: US (occurrence: US)
  Receive Date: 20220615
  Receipt Date: 20220615
  Transmission Date: 20220721
  Serious: Yes (Other)
  Sender: FDA-Public Use
  Company Number: US-NOVARTISPH-NVSC2022US133188

PATIENT
  Age: 46 Year
  Sex: Female
  Weight: 82.55 kg

DRUGS (1)
  1. ENTRESTO [Suspect]
     Active Substance: SACUBITRIL\VALSARTAN
     Indication: Cardiac failure chronic
     Dosage: 200 MG (97/103 MG: SACUBITRIL 97.2 MG, VALSARTAN 102.8 MG), BID
     Route: 048
     Dates: start: 2021

REACTIONS (5)
  - Product availability issue [Recovered/Resolved]
  - Sinusitis [Recovering/Resolving]
  - Cough [Recovering/Resolving]
  - Fatigue [Recovering/Resolving]
  - Hypertension [Recovering/Resolving]

NARRATIVE: CASE EVENT DATE: 20220506
